FAERS Safety Report 21524349 (Version 3)
Quarter: 2022Q4

REPORT INFORMATION
  Report Type: Spontaneous
  Country: US (occurrence: US)
  Receive Date: 20221029
  Receipt Date: 20221201
  Transmission Date: 20230113
  Serious: No
  Sender: FDA-Public Use
  Company Number: US-NOVARTISTESTPH-NVSC2022US242304

PATIENT
  Sex: Female

DRUGS (1)
  1. XIIDRA [Suspect]
     Active Substance: LIFITEGRAST
     Indication: Dry eye
     Dosage: 5 % (2X)
     Route: 065

REACTIONS (4)
  - Eye irritation [Unknown]
  - Vision blurred [Unknown]
  - Dysgeusia [Unknown]
  - Drug intolerance [Unknown]
